FAERS Safety Report 15982342 (Version 1)
Quarter: 2019Q1

REPORT INFORMATION
  Report Type: Report from Study
  Country: PK (occurrence: PK)
  Receive Date: 20190219
  Receipt Date: 20190219
  Transmission Date: 20190418
  Serious: Yes (Death)
  Sender: FDA-Public Use
  Company Number: PHHY2019PK038472

PATIENT
  Sex: Male
  Weight: 60 kg

DRUGS (1)
  1. TASIGNA [Suspect]
     Active Substance: NILOTINIB
     Indication: CHRONIC MYELOID LEUKAEMIA
     Dosage: 2 DF, BID
     Route: 048
     Dates: start: 20161128, end: 20181015

REACTIONS (2)
  - Paralysis [Fatal]
  - Asthenia [Fatal]
